FAERS Safety Report 4483732-9 (Version None)
Quarter: 2004Q4

REPORT INFORMATION
  Report Type: 
  Country: None (occurrence: None)
  Receive Date: 20041021
  Receipt Date: 20041012
  Transmission Date: 20050328
  Serious: Yes (Death)
  Sender: FDA-Public Use
  Company Number: 2004238687US

PATIENT
  Age: 49 Year
  Sex: Female
  Weight: 49.9 kg

DRUGS (8)
  1. SOLU-MEDROL [Suspect]
     Indication: ASTHMA
     Dosage: 125 MG, INTRAMSUCULAR
     Route: 030
  2. SERVENT      (SALMETEROL XINAFOATE) [Concomitant]
  3. FLOVENT [Concomitant]
  4. COMBIVENT [Concomitant]
  5. PLAQUEL (HYDROXYCHLOROQUINE PHOSPHATE) [Concomitant]
  6. HYDROCHLOROTHIAZIDE [Concomitant]
  7. BROMPHENIRAMINE [Concomitant]
  8. AMBIEN [Concomitant]

REACTIONS (5)
  - CHILLS [None]
  - GRAND MAL CONVULSION [None]
  - MUSCLE SPASMS [None]
  - MUSCULOSKELETAL STIFFNESS [None]
  - TREMOR [None]
